FAERS Safety Report 23395903 (Version 3)
Quarter: 2024Q1

REPORT INFORMATION
  Report Type: Report from Study
  Country: US (occurrence: US)
  Receive Date: 20240112
  Receipt Date: 20240320
  Transmission Date: 20240409
  Serious: Yes (Hospitalization, Other)
  Sender: FDA-Public Use
  Company Number: US-GILEAD-2024-0658105

PATIENT
  Sex: Female

DRUGS (4)
  1. AMBRISENTAN [Suspect]
     Active Substance: AMBRISENTAN
     Indication: Pulmonary arterial hypertension
     Dosage: 5 MG, QD
     Route: 065
     Dates: start: 20231023
  2. AMBRISENTAN [Suspect]
     Active Substance: AMBRISENTAN
     Indication: Pulmonary hypertension
  3. TYVASO DPI [Suspect]
     Active Substance: TREPROSTINIL
     Indication: Product used for unknown indication
     Route: 065
  4. ELIQUIS [Concomitant]
     Active Substance: APIXABAN

REACTIONS (8)
  - Intra-abdominal fluid collection [Unknown]
  - Pulmonary hypertension [Unknown]
  - Malaise [Unknown]
  - Oxygen saturation decreased [Unknown]
  - Asthenia [Unknown]
  - Muscular weakness [Unknown]
  - Fluid retention [Not Recovered/Not Resolved]
  - Dizziness [Unknown]
